FAERS Safety Report 11929445 (Version 2)
Quarter: 2016Q1

REPORT INFORMATION
  Report Type: Spontaneous
  Country: JP (occurrence: JP)
  Receive Date: 20160120
  Receipt Date: 20160129
  Transmission Date: 20160526
  Serious: Yes (Other)
  Sender: FDA-Public Use
  Company Number: PHHY2016JP004079

PATIENT
  Age: 53 Year
  Sex: Female
  Weight: 43 kg

DRUGS (4)
  1. LANDSEN [Concomitant]
     Active Substance: CLONAZEPAM
     Indication: PSYCHOMOTOR SEIZURES
     Dosage: 0.5 MG, QD
     Route: 048
  2. IMUSERA [Suspect]
     Active Substance: FINGOLIMOD HYDROCHLORIDE
     Indication: MULTIPLE SCLEROSIS
     Dosage: 0.5 MG, QD
     Route: 048
     Dates: start: 20160105, end: 20160105
  3. JULINA [Concomitant]
     Active Substance: ESTRADIOL
     Indication: OSTEOPOROSIS POSTMENOPAUSAL
     Dosage: 0.5 MG, QD
     Route: 048
  4. JULINA [Concomitant]
     Active Substance: ESTRADIOL
     Dosage: EVERY OTHER DAY BEFORE SLEEP
     Route: 048

REACTIONS (2)
  - Bradycardia [Recovered/Resolved]
  - Ventricular extrasystoles [Recovered/Resolved]

NARRATIVE: CASE EVENT DATE: 20160105
